FAERS Safety Report 9715126 (Version 2)
Quarter: 2014Q1

REPORT INFORMATION
  Report Type: Spontaneous
  Country: US (occurrence: US)
  Receive Date: 20131126
  Receipt Date: 20140120
  Transmission Date: 20141002
  Serious: Yes (Other)
  Sender: FDA-Public Use
  Company Number: US-RB-061006-13

PATIENT
  Age: 36 Year
  Sex: Female

DRUGS (5)
  1. SUBOXONE FILM [Suspect]
     Indication: DRUG DEPENDENCE
     Dosage: SUBOXONE FILM; THE PATIENT WAS CUTTING THE FILM TO ACHIEVE DOSING
     Route: 060
     Dates: start: 201111
  2. CLONIDINE [Concomitant]
     Indication: HYPERTENSION
     Dosage: DOSING DETAILS UNKNOWN
     Route: 048
  3. NEURONTIN [Concomitant]
     Indication: CARPAL TUNNEL SYNDROME
     Dosage: DOSING DETAILS UNKNOWN
     Route: 048
  4. APRAZOLAM [Concomitant]
     Indication: ANXIETY
     Dosage: 3 TIMES DAILY AS NEEDED
     Route: 048
  5. CELEXA [Concomitant]
     Indication: DEPRESSION
     Dosage: DOSING DETAILS UNKNOWN
     Route: 048

REACTIONS (15)
  - Wrong technique in drug usage process [Not Recovered/Not Resolved]
  - Road traffic accident [Recovered/Resolved]
  - Concussion [Unknown]
  - Optic pathway injury [Not Recovered/Not Resolved]
  - Brain injury [Not Recovered/Not Resolved]
  - Vision blurred [Not Recovered/Not Resolved]
  - Migraine [Not Recovered/Not Resolved]
  - Photophobia [Not Recovered/Not Resolved]
  - Disorientation [Not Recovered/Not Resolved]
  - Hypertension [Recovered/Resolved]
  - Dehydration [Recovered/Resolved]
  - Heart rate increased [Unknown]
  - Post concussion syndrome [Not Recovered/Not Resolved]
  - Dizziness [Recovered/Resolved]
  - Balance disorder [Recovered/Resolved]
